FAERS Safety Report 5596841-8 (Version None)
Quarter: 2008Q1

REPORT INFORMATION
  Report Type: 
  Country: None (occurrence: None)
  Receive Date: 20080119
  Receipt Date: 20080114
  Transmission Date: 20080703
  Serious: Yes (Hospitalization, Other)
  Sender: FDA-Public Use
  Company Number: US-PFIZER INC-2008004023

PATIENT
  Sex: Female
  Weight: 113.4 kg

DRUGS (3)
  1. SERTRALINE [Suspect]
     Indication: METABOLIC DISORDER
  2. ABILIFY [Concomitant]
  3. SEROQUEL [Concomitant]

REACTIONS (1)
  - ALLERGY TO CHEMICALS [None]
